FAERS Safety Report 4940054-7 (Version None)
Quarter: 2006Q1

REPORT INFORMATION
  Report Type: 
  Country: None (occurrence: None)
  Receive Date: 20060310
  Receipt Date: 20060130
  Transmission Date: 20060701
  Serious: Yes (Hospitalization, Other)
  Sender: FDA-Public Use
  Company Number: PHBS2006BR01671

PATIENT
  Age: 64 Year
  Sex: Male

DRUGS (6)
  1. SINEMET [Concomitant]
     Indication: PARKINSON'S DISEASE
     Dosage: 3 TAB/D
     Route: 048
  2. HYDROCHLOROTHIAZIDE [Concomitant]
     Route: 048
  3. ATENOLOL [Concomitant]
     Route: 048
  4. ACETYLSALICYLIC ACID SRT [Concomitant]
     Dosage: 1 DF, QD
     Route: 048
  5. COMTAN [Suspect]
     Indication: PARKINSON'S DISEASE
     Dosage: 200 MG, BID
     Route: 048
  6. COMTAN [Suspect]
     Dosage: 200 MG, TID
     Route: 048

REACTIONS (9)
  - AGGRESSION [None]
  - ASTHENIA [None]
  - CONSTIPATION [None]
  - DYSPNOEA [None]
  - FALL [None]
  - FEMUR FRACTURE [None]
  - HEAD INJURY [None]
  - LOSS OF CONSCIOUSNESS [None]
  - NERVOUSNESS [None]
